FAERS Safety Report 15979730 (Version 1)
Quarter: 2019Q1

REPORT INFORMATION
  Report Type: Other
  Country: GB (occurrence: GB)
  Receive Date: 20190219
  Receipt Date: 20190219
  Transmission Date: 20190418
  Serious: Yes (Hospitalization)
  Sender: FDA-Public Use
  Company Number: GB-GLENMARK PHARMACEUTICALS-2019GMK039787

PATIENT

DRUGS (2)
  1. OMEPRAZOLE. [Concomitant]
     Active Substance: OMEPRAZOLE
     Indication: PRODUCT USED FOR UNKNOWN INDICATION
     Dosage: UNK
     Route: 065
  2. TOPIRAMATE. [Suspect]
     Active Substance: TOPIRAMATE
     Indication: MIGRAINE
     Dosage: 100 MG, UNK
     Route: 048
     Dates: start: 20181201, end: 20190107

REACTIONS (1)
  - Loss of consciousness [Recovering/Resolving]

NARRATIVE: CASE EVENT DATE: 20181201
